FAERS Safety Report 7516019-8 (Version None)
Quarter: 2011Q2

REPORT INFORMATION
  Report Type: 
  Country: None (occurrence: None)
  Receive Date: 20110601
  Receipt Date: 20110523
  Transmission Date: 20111010
  Serious: Yes (Hospitalization)
  Sender: FDA-Public Use
  Company Number: AT-ASTRAZENECA-2011SE32092

PATIENT
  Age: 52 Year
  Sex: Female

DRUGS (13)
  1. SEROQUEL [Suspect]
     Route: 048
     Dates: start: 20110327, end: 20110327
  2. LORAZEPAM [Concomitant]
     Dosage: 2 DAILY
     Dates: start: 20110328, end: 20110329
  3. SEROQUEL [Suspect]
     Route: 048
     Dates: start: 20110328, end: 20110403
  4. EFFEXOR XR [Suspect]
     Dosage: 150 DAILY
     Dates: start: 20110329, end: 20110411
  5. LORAZEPAM [Concomitant]
     Dosage: 1 DAILY
     Dates: start: 20110331, end: 20110331
  6. MARCOUMAR GEM [Concomitant]
     Dosage: INR/TT
  7. EFFEXOR XR [Suspect]
     Dosage: 75 DAILY
     Dates: start: 20110328, end: 20110328
  8. SEROQUEL [Suspect]
     Route: 048
     Dates: start: 20110403
  9. LORAZEPAM [Concomitant]
     Dosage: 1 DAILY
     Dates: start: 20110402, end: 20110403
  10. LORAZEPAM [Concomitant]
     Dosage: 0.5 DAILY
     Dates: start: 20110404, end: 20110405
  11. LORAZEPAM [Concomitant]
     Dosage: 3.5 DAILY
     Dates: start: 20110327, end: 20110327
  12. LORAZEPAM [Concomitant]
     Dosage: 1.5 DAILY
     Dates: start: 20110330, end: 20110330
  13. EFFEXOR XR [Suspect]
     Dosage: 225 DAILY
     Dates: start: 20110412

REACTIONS (1)
  - PULMONARY EMBOLISM [None]
